FAERS Safety Report 5189219-2 (Version None)
Quarter: 2006Q4

REPORT INFORMATION
  Report Type: 
  Country: None (occurrence: None)
  Receive Date: 20061218
  Receipt Date: 20061208
  Transmission Date: 20070319
  Serious: No
  Sender: FDA-Public Use
  Company Number: 163-21880-06120492

PATIENT
  Age: 76 Year
  Sex: Female

DRUGS (1)
  1. REVLIMID [Suspect]
     Indication: MULTIPLE MYELOMA
     Dosage: 25 MG, 1 IN 1 D, ORAL
     Route: 048
     Dates: start: 20060701, end: 20061101

REACTIONS (2)
  - HAEMATOCHEZIA [None]
  - NAIL BED BLEEDING [None]
